FAERS Safety Report 7905191-3 (Version None)
Quarter: 2011Q4

REPORT INFORMATION
  Report Type: 
  Country: None (occurrence: None)
  Receive Date: 20111109
  Receipt Date: 20111102
  Transmission Date: 20120403
  Serious: Yes (Other)
  Sender: FDA-Public Use
  Company Number: JP-B.I. PHARMACEUTICALS,INC./RIDGEFIELD-2011-BP-23242NB

PATIENT
  Sex: Female
  Weight: 41.4 kg

DRUGS (5)
  1. PRADAXA [Suspect]
     Indication: ATRIAL FLUTTER
     Dosage: 220 MG
     Route: 048
     Dates: start: 20110715, end: 20110829
  2. PURSENNID [Concomitant]
     Indication: CONSTIPATION
     Dosage: 24 MG
     Route: 048
     Dates: start: 20101012
  3. MUCOSTA [Concomitant]
     Indication: GASTRITIS
     Dosage: 200 MG
     Route: 048
     Dates: start: 20101012
  4. SUNRYTHM [Concomitant]
     Indication: ATRIAL FIBRILLATION
     Dosage: 150 MG
     Route: 048
     Dates: start: 20100930
  5. URSO 250 [Concomitant]
     Indication: BILE DUCT STONE
     Dosage: 300 MG
     Route: 048
     Dates: start: 20101030

REACTIONS (4)
  - CEREBRAL HAEMORRHAGE [None]
  - HAEMOPTYSIS [None]
  - EPISTAXIS [None]
  - NASOPHARYNGITIS [None]
